FAERS Safety Report 16539024 (Version 1)
Quarter: 2019Q3

REPORT INFORMATION
  Report Type: Spontaneous
  Country: US (occurrence: US)
  Receive Date: 20190705
  Receipt Date: 20190705
  Transmission Date: 20191004
  Serious: No
  Sender: FDA-Public Use
  Company Number: None

PATIENT
  Age: 28 Year
  Sex: Female
  Weight: 58.5 kg

DRUGS (7)
  1. AIMOVIG [Suspect]
     Active Substance: ERENUMAB-AOOE
     Indication: MIGRAINE PROPHYLAXIS
     Dosage: ?          QUANTITY:1 INJECTION(S);OTHER FREQUENCY:MONTHLY;?
     Route: 058
     Dates: start: 20181210, end: 20190410
  2. TYLENOL [Concomitant]
     Active Substance: ACETAMINOPHEN
  3. BIOTIN [Concomitant]
     Active Substance: BIOTIN
  4. TIZANIDINE. [Concomitant]
     Active Substance: TIZANIDINE
  5. ADVIL [Concomitant]
     Active Substance: IBUPROFEN
  6. MULTIVITAMIN [Concomitant]
     Active Substance: VITAMINS
  7. FIORICET [Concomitant]
     Active Substance: ACETAMINOPHEN\BUTALBITAL\CAFFEINE

REACTIONS (3)
  - Gastritis [None]
  - Ulcer [None]
  - Weight increased [None]

NARRATIVE: CASE EVENT DATE: 20190110
